FAERS Safety Report 5857523-8 (Version None)
Quarter: 2008Q3

REPORT INFORMATION
  Report Type: 
  Country: None (occurrence: None)
  Receive Date: 20080826
  Receipt Date: 20080815
  Transmission Date: 20090109
  Serious: Yes (Hospitalization)
  Sender: FDA-Public Use
  Company Number: DE-ROCHE-581483

PATIENT

DRUGS (3)
  1. MYCOPHENOLATE MOFETIL [Suspect]
     Indication: LUNG TRANSPLANT
     Route: 065
  2. TACROLIMUS [Suspect]
     Indication: LUNG TRANSPLANT
     Route: 065
  3. STEROID NOS [Suspect]
     Indication: LUNG TRANSPLANT
     Dosage: DRUG NAME: STEROIDE.
     Route: 065

REACTIONS (3)
  - BLOOD CREATININE INCREASED [None]
  - DRUG LEVEL CHANGED [None]
  - LEUKOPENIA [None]
